FAERS Safety Report 4375626-4 (Version None)
Quarter: 2004Q2

REPORT INFORMATION
  Report Type: 
  Country: None (occurrence: None)
  Receive Date: 20040607
  Receipt Date: 20040525
  Transmission Date: 20050107
  Serious: Yes (Hospitalization, Disabling)
  Sender: FDA-Public Use
  Company Number: US-JNJFOC-20040506033

PATIENT
  Age: 61 Year
  Sex: Female
  Weight: 91.6266 kg

DRUGS (9)
  1. REMICADE [Suspect]
     Indication: RHEUMATOID ARTHRITIS
     Dosage: INTRAVENOUS; 400 MG, INTRAVENOUS
     Route: 042
     Dates: start: 20020601
  2. REMICADE [Suspect]
     Indication: RHEUMATOID ARTHRITIS
     Dosage: INTRAVENOUS; 400 MG, INTRAVENOUS
     Route: 042
     Dates: start: 20040217
  3. REMICADE [Suspect]
     Indication: RHEUMATOID ARTHRITIS
     Dosage: INTRAVENOUS; 400 MG, INTRAVENOUS
     Route: 042
     Dates: start: 20040329
  4. MTX (METHOREXATE SODIUM) [Concomitant]
  5. NORVASC [Concomitant]
  6. PROZAC [Concomitant]
  7. FOLIC ACID [Concomitant]
  8. NAPROSYN [Concomitant]
  9. LIPITOR [Concomitant]

REACTIONS (6)
  - ABSCESS [None]
  - PARAPLEGIA [None]
  - PRURITUS [None]
  - SEPSIS [None]
  - SPINAL DISORDER [None]
  - URTICARIA [None]
